FAERS Safety Report 9079847 (Version 1)
Quarter: 2013Q1

REPORT INFORMATION
  Report Type: Report from Study
  Country: US (occurrence: US)
  Receive Date: 20130130
  Receipt Date: 20130130
  Transmission Date: 20140127
  Serious: No
  Sender: FDA-Public Use
  Company Number: US-ABBOTT-12P-163-0962871-00

PATIENT
  Age: 40 Year
  Sex: Female

DRUGS (5)
  1. HUMIRA 40 MG/0.8 ML PEN [Suspect]
     Indication: CROHN^S DISEASE
     Route: 058
     Dates: start: 20120703
  2. METHOTREXATE [Concomitant]
     Indication: CROHN^S DISEASE
  3. FOLIC ACID [Concomitant]
     Indication: CROHN^S DISEASE
     Dosage: 7 TABS DAILY
  4. MORPHINE [Concomitant]
     Indication: PAIN
     Dosage: TWICE DAILY AS NEEDED
  5. MORPHINE [Concomitant]
     Indication: CROHN^S DISEASE

REACTIONS (2)
  - Hot flush [Not Recovered/Not Resolved]
  - Hyperhidrosis [Not Recovered/Not Resolved]
